FAERS Safety Report 17763735 (Version 2)
Quarter: 2020Q4

REPORT INFORMATION
  Report Type: Other
  Country: FR (occurrence: FR)
  Receive Date: 20200510
  Receipt Date: 20201104
  Transmission Date: 20210113
  Serious: Yes (Hospitalization)
  Sender: FDA-Public Use
  Company Number: FR-CADILA HEALTHCARE LIMITED-FR-ZYDUS-024990

PATIENT

DRUGS (8)
  1. ALDACTONE [Suspect]
     Active Substance: SPIRONOLACTONE
     Indication: HYPERTENSION
     Dosage: 25 MILLIGRAM,(INTERVAL :1 DAYS)
     Route: 048
     Dates: end: 20160214
  2. FUROSEMIDE. [Suspect]
     Active Substance: FUROSEMIDE
     Dosage: 500 MILLIGRAM, QD
     Route: 048
  3. CEFEPIME [Suspect]
     Active Substance: CEFEPIME HYDROCHLORIDE
     Indication: SEPSIS
     Dosage: 6 GRAM,(INTERVAL :1 DAYS)
     Route: 042
     Dates: start: 20160205, end: 20160211
  4. PERINDOPRIL [Suspect]
     Active Substance: PERINDOPRIL
     Indication: HYPERTENSION
     Dosage: 12 MILLIGRAM,(INTERVAL :1 DAYS)
     Route: 048
     Dates: end: 20160214
  5. GENTAMICINE [Suspect]
     Active Substance: GENTAMICIN
     Indication: SEPSIS
     Dosage: 300 MILLIGRAM,(INTERVAL :1 DAYS)
     Route: 042
     Dates: start: 20160204, end: 20160209
  6. ESIDREX [Suspect]
     Active Substance: HYDROCHLOROTHIAZIDE
     Indication: HYPERTENSION
     Dosage: .5 DOSAGE FORM,(INTERVAL :1 DAYS)
     Dates: end: 20160214
  7. LEVOFLOXACIN. [Suspect]
     Active Substance: LEVOFLOXACIN
     Indication: SEPSIS
     Dosage: 500 MILLIGRAM,(INTERVAL :1 DAYS)
     Route: 048
     Dates: start: 20160211
  8. FUROSEMIDE. [Suspect]
     Active Substance: FUROSEMIDE
     Indication: HYPERTENSION
     Dosage: 250 MILLIGRAM,ALTERNATELY 250 MG OR 125 MG (EVERY OTHER DAY),(INTERVAL :2 DAYS)
     Route: 048

REACTIONS (2)
  - Renal tubular necrosis [Recovering/Resolving]
  - Acute kidney injury [Recovering/Resolving]

NARRATIVE: CASE EVENT DATE: 20160214
